FAERS Safety Report 7547400-9 (Version None)
Quarter: 2011Q2

REPORT INFORMATION
  Report Type: 
  Country: None (occurrence: None)
  Receive Date: 20110614
  Receipt Date: 20110609
  Transmission Date: 20111010
  Serious: Yes (Death)
  Sender: FDA-Public Use
  Company Number: US-GILEAD-2011-0040309

PATIENT
  Age: 59 Year
  Sex: Female

DRUGS (3)
  1. LETAIRIS [Suspect]
     Indication: PULMONARY HYPERTENSION
     Route: 048
     Dates: start: 20101104
  2. LETAIRIS [Suspect]
     Indication: ATRIAL SEPTAL DEFECT
  3. ADCIRCA [Concomitant]

REACTIONS (2)
  - PARADOXICAL EMBOLISM [None]
  - CEREBROVASCULAR ACCIDENT [None]
